FAERS Safety Report 6714015-1 (Version None)
Quarter: 2010Q2

REPORT INFORMATION
  Report Type: 
  Country: None (occurrence: None)
  Receive Date: 20100506
  Receipt Date: 20100423
  Transmission Date: 20101027
  Serious: Yes (Other)
  Sender: FDA-Public Use
  Company Number: PHHY2010JP26346

PATIENT
  Age: 85 Year
  Sex: Female

DRUGS (1)
  1. ZOMETA [Suspect]
     Indication: METASTASES TO BONE
     Dosage: 4 MG, UNK
     Route: 042
     Dates: start: 20061201, end: 20080901

REACTIONS (5)
  - GINGIVAL SWELLING [None]
  - ORAL BACTERIAL INFECTION [None]
  - OSTEONECROSIS OF JAW [None]
  - PURULENCE [None]
  - TOOTH EXTRACTION [None]
